FAERS Safety Report 7513953-X (Version None)
Quarter: 2011Q2

REPORT INFORMATION
  Report Type: 
  Country: None (occurrence: None)
  Receive Date: 20110531
  Receipt Date: 20110517
  Transmission Date: 20111010
  Serious: Yes (Hospitalization)
  Sender: FDA-Public Use
  Company Number: AU-MYLANLABS-2011S1010442

PATIENT
  Age: 80 Year
  Sex: Male

DRUGS (6)
  1. CARBIDOPA + LEVODOPA [Suspect]
     Indication: PARKINSON'S DISEASE
     Route: 048
     Dates: start: 20110506, end: 20110512
  2. CARBIDOPA + LEVODOPA [Suspect]
     Route: 048
     Dates: start: 20110506, end: 20110512
  3. DIAZEPAM [Suspect]
     Dates: start: 20110401
  4. PRAVASTATIN [Concomitant]
  5. SERETIDE [Concomitant]
  6. FLUOXETINE HCL [Suspect]
     Dates: start: 20110401

REACTIONS (5)
  - SKIN EXFOLIATION [None]
  - ERYTHEMA [None]
  - EOSINOPHIL COUNT INCREASED [None]
  - BLISTER [None]
  - OEDEMA PERIPHERAL [None]
